FAERS Safety Report 10629863 (Version 2)
Quarter: 2014Q4

REPORT INFORMATION
  Report Type: Spontaneous
  Country: US (occurrence: US)
  Receive Date: 20141205
  Receipt Date: 20141205
  Transmission Date: 20150529
  Serious: No
  Sender: FDA-Public Use
  Company Number: US-BRISTOL-MYERS SQUIBB COMPANY-21410444

PATIENT
  Age: 52 Year
  Sex: Male

DRUGS (1)
  1. BYETTA [Suspect]
     Active Substance: EXENATIDE
     Indication: DIABETES MELLITUS
     Dosage: PATIENT TO TAKE 2 5MCG DOSES OF BYETTA EACH DAY FROM A 10MCG BYETTA PEN
     Route: 058
     Dates: start: 20140919

REACTIONS (1)
  - Medication error [Unknown]

NARRATIVE: CASE EVENT DATE: 201409
